FAERS Safety Report 10498654 (Version 2)
Quarter: 2015Q3

REPORT INFORMATION
  Report Type: Report from Study
  Country: CA (occurrence: CA)
  Receive Date: 20141006
  Receipt Date: 20150806
  Transmission Date: 20151125
  Serious: Yes (Death, Hospitalization, Other)
  Sender: FDA-Public Use
  Company Number: CA-GILEAD-2014-0117005

PATIENT
  Age: 74 Year
  Sex: Male

DRUGS (3)
  1. CIALIS [Concomitant]
     Active Substance: TADALAFIL
  2. SIMEPREVIR [Suspect]
     Active Substance: SIMEPREVIR
     Indication: CHRONIC HEPATITIS C
     Dosage: 150 MG, QD
     Route: 048
  3. SOFOSBUVIR [Suspect]
     Active Substance: SOFOSBUVIR
     Indication: HEPATITIS C
     Dosage: 400 MG, QD
     Route: 048
     Dates: start: 20140513

REACTIONS (8)
  - Staphylococcal infection [Fatal]
  - Arthralgia [Fatal]
  - Off label use [Fatal]
  - Peripheral swelling [Fatal]
  - Death [Fatal]
  - Limb injury [Fatal]
  - Pain in extremity [Fatal]
  - Local swelling [Fatal]

NARRATIVE: CASE EVENT DATE: 20140702
